FAERS Safety Report 10068595 (Version 1)
Quarter: 2014Q2

REPORT INFORMATION
  Report Type: Spontaneous
  Country: FR (occurrence: FR)
  Receive Date: 20140409
  Receipt Date: 20140409
  Transmission Date: 20141212
  Serious: Yes (Death)
  Sender: FDA-Public Use
  Company Number: FR-ELI_LILLY_AND_COMPANY-FR201404001442

PATIENT
  Age: 67 Year
  Sex: Male

DRUGS (2)
  1. ALIMTA [Suspect]
     Dosage: UNK
  2. CARBOPLATINE [Concomitant]

REACTIONS (4)
  - Febrile bone marrow aplasia [Fatal]
  - Gastrointestinal toxicity [Fatal]
  - Renal failure [Fatal]
  - Off label use [Unknown]
